FAERS Safety Report 23021152 (Version 1)
Quarter: 2023Q4

REPORT INFORMATION
  Report Type: Spontaneous
  Country: US (occurrence: None)
  Receive Date: 20231003
  Receipt Date: 20231003
  Transmission Date: 20240109
  Serious: Yes (Hospitalization)
  Sender: FDA-Public Use
  Company Number: None

PATIENT
  Sex: Female
  Weight: 43.1 kg

DRUGS (1)
  1. PEMBROLIZUMAB [Suspect]
     Active Substance: PEMBROLIZUMAB

REACTIONS (6)
  - Fall [None]
  - Head injury [None]
  - Pain [None]
  - Joint injury [None]
  - Skin laceration [None]
  - Femur fracture [None]

NARRATIVE: CASE EVENT DATE: 20230922
